FAERS Safety Report 10931091 (Version 1)
Quarter: 2015Q1

REPORT INFORMATION
  Report Type: Spontaneous
  Country: FR (occurrence: FR)
  Receive Date: 20150319
  Receipt Date: 20150319
  Transmission Date: 20150721
  Serious: Yes (Hospitalization)
  Sender: FDA-Public Use
  Company Number: FR-B.I. PHARMACEUTICALS,INC./RIDGEFIELD-2015-BI-13610FF

PATIENT
  Age: 48 Year
  Sex: Male

DRUGS (4)
  1. PRADAXA [Suspect]
     Active Substance: DABIGATRAN ETEXILATE MESYLATE
     Indication: PRODUCT USED FOR UNKNOWN INDICATION
     Dosage: TOOK ABOUT 20-30 TABLETS AT 150MG
     Route: 048
     Dates: start: 20150204, end: 20150204
  2. COVERSYL [Suspect]
     Active Substance: PERINDOPRIL
     Indication: PRODUCT USED FOR UNKNOWN INDICATION
     Dosage: SUPPOSED TOOK MORE THAN 2 PLATES
     Route: 048
     Dates: start: 20150204, end: 20150204
  3. NOVORAPID [Suspect]
     Active Substance: INSULIN ASPART
     Indication: PRODUCT USED FOR UNKNOWN INDICATION
     Dosage: SUPPOSED ADMINISTRATED 5 DOSES INJECTION
     Route: 065
     Dates: start: 20150204, end: 20150204
  4. TRAMADOL [Suspect]
     Active Substance: TRAMADOL
     Indication: PRODUCT USED FOR UNKNOWN INDICATION
     Dosage: SUPPOSED TOOK MORE THAN 2 PLATES
     Route: 048
     Dates: start: 20150204, end: 20150204

REACTIONS (3)
  - Vomiting [Recovered/Resolved]
  - Thrombin time prolonged [Recovered/Resolved]
  - Hypoglycaemia [Recovered/Resolved]

NARRATIVE: CASE EVENT DATE: 20150204
